FAERS Safety Report 4638098-8 (Version None)
Quarter: 2005Q2

REPORT INFORMATION
  Report Type: 
  Country: None (occurrence: None)
  Receive Date: 20050418
  Receipt Date: 20050413
  Transmission Date: 20051028
  Serious: Yes (Life-Threatening, Hospitalization)
  Sender: FDA-Public Use
  Company Number: PHBS2005FR05335

PATIENT
  Age: 44 Year
  Sex: Female

DRUGS (1)
  1. DICLOFENAC SODIUM [Suspect]
     Indication: BACK PAIN

REACTIONS (20)
  - ANGIOIMMUNOBLASTIC T-CELL LYMPHOMA [None]
  - BLOOD CREATININE INCREASED [None]
  - BLOOD IMMUNOGLOBULIN E INCREASED [None]
  - CRACKLES LUNG [None]
  - EOSINOPHILIA [None]
  - FACE OEDEMA [None]
  - GAMMOPATHY [None]
  - HEPATOMEGALY [None]
  - LIFE SUPPORT [None]
  - LUNG INFILTRATION [None]
  - LYMPHADENOPATHY [None]
  - MONONUCLEOSIS SYNDROME [None]
  - PRURITUS [None]
  - PYREXIA [None]
  - RASH ERYTHEMATOUS [None]
  - RASH MACULO-PAPULAR [None]
  - RESPIRATORY DISTRESS [None]
  - SKIN EXFOLIATION [None]
  - STEM CELL TRANSPLANT [None]
  - THERAPEUTIC RESPONSE DECREASED [None]
